FAERS Safety Report 8439647-4 (Version None)
Quarter: 2012Q2

REPORT INFORMATION
  Report Type: 
  Country: None (occurrence: None)
  Receive Date: 20120323
  Receipt Date: 20110526
  Transmission Date: 20120825
  Serious: Yes (Other)
  Sender: FDA-Public Use
  Company Number: 163-21880-11053653

PATIENT
  Age: 77 Year
  Sex: Male
  Weight: 65.7716 kg

DRUGS (6)
  1. ASPIRIN [Concomitant]
  2. DECADRON [Concomitant]
  3. VITAMIN B COMPLEX (B-KOMPLEX ^LECIVA^)(UNKNOWN) [Concomitant]
  4. MULTIVITAMINS (MULTIVITAMINS)(UNKNOWN) [Concomitant]
  5. REVLIMID [Suspect]
     Indication: MULTIPLE MYELOMA
     Dosage: 15 MG, X 21 DAYS/OFF 7 DAYS, PO, PO
     Route: 048
     Dates: start: 20100902, end: 20110418
  6. ZOMETA [Concomitant]

REACTIONS (1)
  - UPPER RESPIRATORY TRACT INFECTION [None]
